FAERS Safety Report 13192153 (Version 1)
Quarter: 2017Q1

REPORT INFORMATION
  Report Type: Spontaneous
  Country: US (occurrence: US)
  Receive Date: 20170206
  Receipt Date: 20170206
  Transmission Date: 20170428
  Serious: No
  Sender: FDA-Public Use
  Company Number: None

PATIENT
  Age: 62 Year
  Sex: Male
  Weight: 96 kg

DRUGS (2)
  1. NAFCILLIN [Suspect]
     Active Substance: NAFCILLIN\NAFCILLIN SODIUM
     Indication: STAPHYLOCOCCAL BACTERAEMIA
  2. NAFCILLIN [Suspect]
     Active Substance: NAFCILLIN\NAFCILLIN SODIUM
     Indication: ARTHRITIS BACTERIAL

REACTIONS (1)
  - Hypokalaemia [None]

NARRATIVE: CASE EVENT DATE: 20170125
